FAERS Safety Report 6841631-9 (Version None)
Quarter: 2010Q3

REPORT INFORMATION
  Report Type: 
  Country: None (occurrence: None)
  Receive Date: 20100714
  Receipt Date: 20071212
  Transmission Date: 20110219
  Serious: No
  Sender: FDA-Public Use
  Company Number: US-PFIZER INC-2007057555

PATIENT
  Sex: Female
  Weight: 58.97 kg

DRUGS (12)
  1. CHANTIX [Suspect]
     Indication: SMOKING CESSATION THERAPY
     Dates: start: 20070601, end: 20070701
  2. NO PRODUCT FOUND [Suspect]
  3. RESTORIL [Concomitant]
     Dosage: FREQUENCY: PRN
  4. XANAX [Concomitant]
     Dosage: FREQUENCY: PRN
  5. TRAZODONE HYDROCHLORIDE [Concomitant]
  6. PREMARIN [Concomitant]
  7. LOVAZA [Concomitant]
  8. VITAMIN D [Concomitant]
  9. VITAMIN C [Concomitant]
  10. CALCIUM [Concomitant]
  11. ZOCOR [Concomitant]
  12. ALL OTHER THERAPEUTIC PRODUCTS [Concomitant]

REACTIONS (8)
  - ABDOMINAL DISTENSION [None]
  - ABDOMINAL PAIN UPPER [None]
  - BLOOD CHOLESTEROL INCREASED [None]
  - DIARRHOEA [None]
  - FLATULENCE [None]
  - HYPERSENSITIVITY [None]
  - NAUSEA [None]
  - RASH [None]
